FAERS Safety Report 6869479-X (Version None)
Quarter: 2010Q3

REPORT INFORMATION
  Report Type: 
  Country: None (occurrence: None)
  Receive Date: 20100722
  Receipt Date: 20080904
  Transmission Date: 20110219
  Serious: Yes (Other)
  Sender: FDA-Public Use
  Company Number: US-PFIZER INC-2008064824

PATIENT
  Sex: Male
  Weight: 57.6 kg

DRUGS (8)
  1. CHANTIX [Suspect]
     Indication: SMOKING CESSATION THERAPY
     Route: 048
     Dates: start: 20080703, end: 20080725
  2. ADVAIR DISKUS 100/50 [Concomitant]
     Route: 055
  3. ALBUTEROL [Concomitant]
  4. ZOLOFT [Concomitant]
  5. XANAX [Concomitant]
  6. PERCOCET [Concomitant]
  7. PROZAC [Concomitant]
  8. MONTELUKAST [Concomitant]

REACTIONS (9)
  - ABNORMAL DREAMS [None]
  - AGGRESSION [None]
  - AMNESIA [None]
  - ANGER [None]
  - HALLUCINATION [None]
  - MOOD SWINGS [None]
  - PSYCHOTIC BEHAVIOUR [None]
  - SUICIDE ATTEMPT [None]
  - WRONG TECHNIQUE IN DRUG USAGE PROCESS [None]
